FAERS Safety Report 5601498-3 (Version None)
Quarter: 2008Q1

REPORT INFORMATION
  Report Type: 
  Country: None (occurrence: None)
  Receive Date: 20080124
  Receipt Date: 20070404
  Transmission Date: 20080703
  Serious: No
  Sender: FDA-Public Use
  Company Number: US-BAYER-200710482BCC

PATIENT
  Age: 36 Year
  Sex: Female
  Weight: 82 kg

DRUGS (4)
  1. ALEVE COLD AND SINUS [Suspect]
     Indication: DRUG USE FOR UNKNOWN INDICATION
     Dosage: TOTAL DAILY DOSE: 440 MG  UNIT DOSE: 220 MG
     Route: 048
     Dates: start: 20070209
  2. ALEVE [Suspect]
     Indication: DRUG USE FOR UNKNOWN INDICATION
     Dosage: TOTAL DAILY DOSE: 440 MG  UNIT DOSE: 220 MG
     Route: 048
     Dates: start: 20070209
  3. CELEXA [Concomitant]
  4. BIRTH CONTROL PILLS [Concomitant]

REACTIONS (1)
  - ANXIETY [None]
